FAERS Safety Report 15755704 (Version 1)
Quarter: 2018Q4

REPORT INFORMATION
  Report Type: Report from Study
  Country: DE (occurrence: DE)
  Receive Date: 20181224
  Receipt Date: 20181224
  Transmission Date: 20190205
  Serious: Yes (Other)
  Sender: FDA-Public Use
  Company Number: DE-ROCHE-2156883

PATIENT
  Sex: Male

DRUGS (8)
  1. PREDNISOLON [Concomitant]
     Active Substance: PREDNISOLONE
  2. VIGANTOLETTEN [Concomitant]
     Active Substance: CHOLECALCIFEROL
  3. ALDARA [Concomitant]
     Active Substance: IMIQUIMOD
     Indication: BASAL CELL CARCINOMA
     Route: 065
  4. TOREM [Concomitant]
     Active Substance: TORSEMIDE
  5. XARELTO [Concomitant]
     Active Substance: RIVAROXABAN
  6. RITUXIMAB. [Suspect]
     Active Substance: RITUXIMAB
     Indication: RHEUMATOID ARTHRITIS
     Route: 042
     Dates: start: 20180709
  7. RITUXIMAB. [Suspect]
     Active Substance: RITUXIMAB
     Route: 042
     Dates: start: 20180122
  8. AZATHIOPRIN [Suspect]
     Active Substance: AZATHIOPRINE
     Indication: PRODUCT USED FOR UNKNOWN INDICATION
     Route: 065

REACTIONS (1)
  - Basal cell carcinoma [Recovered/Resolved]
